FAERS Safety Report 14502996 (Version 1)
Quarter: 2018Q1

REPORT INFORMATION
  Report Type: Spontaneous
  Country: US (occurrence: US)
  Receive Date: 20180208
  Receipt Date: 20180208
  Transmission Date: 20180509
  Serious: No
  Sender: FDA-Public Use
  Company Number: US-US WORLDMEDS, LLC-USW201612-000922

PATIENT
  Sex: Female

DRUGS (2)
  1. SYNTHROID [Concomitant]
     Active Substance: LEVOTHYROXINE SODIUM
     Indication: HYPERTHYROIDISM
  2. CORGARD [Suspect]
     Active Substance: NADOLOL
     Indication: SINUS TACHYCARDIA

REACTIONS (3)
  - Product use in unapproved indication [Unknown]
  - Blood glucose increased [Unknown]
  - Dysgeusia [Unknown]
